FAERS Safety Report 11054941 (Version 2)
Quarter: 2015Q2

REPORT INFORMATION
  Report Type: Spontaneous
  Country: US (occurrence: US)
  Receive Date: 20150422
  Receipt Date: 20150501
  Transmission Date: 20150821
  Serious: No
  Sender: FDA-Public Use
  Company Number: US-AMGEN-USASP2015038096

PATIENT
  Age: 61 Year
  Sex: Male
  Weight: 79.37 kg

DRUGS (1)
  1. ENBREL [Suspect]
     Active Substance: ETANERCEPT
     Indication: PSORIATIC ARTHROPATHY
     Dosage: 50 MG, QWK
     Route: 058
     Dates: start: 20150403, end: 20150409

REACTIONS (13)
  - Joint swelling [Not Recovered/Not Resolved]
  - Urticaria [Recovered/Resolved]
  - Pain in extremity [Not Recovered/Not Resolved]
  - Injection site induration [Recovered/Resolved]
  - Local swelling [Not Recovered/Not Resolved]
  - Pruritus [Recovered/Resolved]
  - Injection site pruritus [Recovered/Resolved]
  - Injection site swelling [Recovered/Resolved]
  - Rash [Recovered/Resolved]
  - Peripheral swelling [Not Recovered/Not Resolved]
  - Skin induration [Not Recovered/Not Resolved]
  - Food allergy [Unknown]
  - Injection site reaction [Recovered/Resolved]

NARRATIVE: CASE EVENT DATE: 20150403
